FAERS Safety Report 10217397 (Version 5)
Quarter: 2015Q1

REPORT INFORMATION
  Report Type: Spontaneous
  Country: IT (occurrence: IT)
  Receive Date: 20140604
  Receipt Date: 20150107
  Transmission Date: 20150720
  Serious: Yes (Hospitalization)
  Sender: FDA-Public Use
  Company Number: IT-PFIZER INC-2014149626

PATIENT
  Age: 73 Year
  Sex: Male

DRUGS (9)
  1. COUMADIN [Concomitant]
     Active Substance: WARFARIN SODIUM
     Route: 048
  2. NOVORAPID [Concomitant]
     Active Substance: INSULIN ASPART
     Route: 058
  3. PANTOPRAZOLE [Concomitant]
     Active Substance: PANTOPRAZOLE SODIUM
     Dosage: 20 MG, UNK
     Route: 048
  4. SIMVASTATIN. [Concomitant]
     Active Substance: SIMVASTATIN
     Route: 048
  5. CARDIOASPIRIN [Concomitant]
     Active Substance: ASPIRIN
     Dosage: 100 MG, UNK
     Route: 048
  6. MICARDIS [Concomitant]
     Active Substance: TELMISARTAN
     Dosage: 80 MG, UNK
  7. SUTENT [Suspect]
     Active Substance: SUNITINIB MALATE
     Dosage: 50 MG DAY, CYCLIC
     Route: 048
     Dates: start: 20140214, end: 20140303
  8. SUTENT [Suspect]
     Active Substance: SUNITINIB MALATE
     Indication: CLEAR CELL RENAL CELL CARCINOMA
     Dosage: 37.5 MG DAY CYCLIC
     Route: 048
     Dates: start: 20131213
  9. ATENOLOL. [Concomitant]
     Active Substance: ATENOLOL
     Dosage: 50 MG, UNK
     Route: 048

REACTIONS (5)
  - Acute myocardial infarction [Recovered/Resolved]
  - Drug-induced liver injury [Recovered/Resolved]
  - Pneumonitis [Recovered/Resolved]
  - Disease progression [Unknown]
  - Clear cell renal cell carcinoma [Unknown]

NARRATIVE: CASE EVENT DATE: 20140303
